FAERS Safety Report 9654344 (Version 1)
Quarter: 2013Q4

REPORT INFORMATION
  Report Type: Spontaneous
  Country: US (occurrence: None)
  Receive Date: 20131015
  Receipt Date: 20131015
  Transmission Date: 20140711
  Serious: Yes (Other)
  Sender: FDA-Public Use
  Company Number: 2012031123

PATIENT
  Sex: Female
  Weight: 78.02 kg

DRUGS (19)
  1. HIZENTRA [Suspect]
     Indication: IMMUNODEFICIENCY COMMON VARIABLE
     Dosage: IN 1-2 SITES
     Route: 058
     Dates: start: 20120103, end: 20120103
  2. COZAAR (LOSARTAN POTASSIUM) (50 MILLIGRAM, TABLETS) (LOSARTAN POTASSIUM) [Concomitant]
  3. METFORMIN HCL [Concomitant]
  4. NOVOLOG (INSULIN ASPART) [Concomitant]
  5. VITAMN D3 (COLECALCIFEROL) [Concomitant]
  6. CO Q 10 (UBIDECARENONE) [Concomitant]
  7. ASPIRIN EC (ACETYLSALICYLIC ACID) [Concomitant]
  8. MULTIVITAMIN [Concomitant]
  9. LIDOCAINE/PRILOCAINE [Concomitant]
  10. NORVASC (AMLODIPINE) [Concomitant]
  11. LEVEMIR (INSULIN DETEMIR) [Concomitant]
  12. TOPROL XL (METOPROLOL SUCCINATE) [Concomitant]
  13. TYLENOL EX-STR (PARACETAMOL) [Concomitant]
  14. SYNTHROID (LEVOTHYROXINE SODIUM) [Concomitant]
  15. DIPHENHYDRAMINE [Concomitant]
  16. LANTUS (INSULIN GLARGINE) [Concomitant]
  17. EPIPEN (EPINEPHRINE) [Concomitant]
  18. LMX (LIDOCAINE) [Concomitant]
  19. VITAMIN D (ERGOCALCIFEROL) [Concomitant]

REACTIONS (2)
  - Fatigue [None]
  - Infusion site infection [None]
